FAERS Safety Report 23932108 (Version 1)
Quarter: 2024Q2

REPORT INFORMATION
  Report Type: Spontaneous
  Country: PT (occurrence: PT)
  Receive Date: 20240603
  Receipt Date: 20240603
  Transmission Date: 20240716
  Serious: Yes (Hospitalization)
  Sender: FDA-Public Use
  Company Number: PT-MLMSERVICE-20240520-PI071823-00152-1

PATIENT
  Age: 64 Year
  Sex: Female

DRUGS (1)
  1. FLUOROURACIL [Suspect]
     Active Substance: FLUOROURACIL
     Indication: Rectal adenocarcinoma

REACTIONS (7)
  - Myocardial fibrosis [Unknown]
  - Pulmonary embolism [Unknown]
  - Right ventricular dysfunction [Unknown]
  - Cardiac failure acute [Unknown]
  - Left ventricular end-diastolic pressure increased [Unknown]
  - Cardiomyopathy [Unknown]
  - Pulmonary hypertension [Unknown]
